FAERS Safety Report 12545300 (Version 1)
Quarter: 2016Q3

REPORT INFORMATION
  Report Type: Spontaneous
  Country: IT (occurrence: IT)
  Receive Date: 20160711
  Receipt Date: 20160711
  Transmission Date: 20161109
  Serious: Yes (Hospitalization)
  Sender: FDA-Public Use
  Company Number: IT-SA-2016SA124918

PATIENT
  Age: 77 Year
  Sex: Male

DRUGS (8)
  1. FOLINA [Concomitant]
     Active Substance: FOLIC ACID
     Route: 048
  2. ATENOLOL. [Concomitant]
     Active Substance: ATENOLOL
     Route: 048
  3. FERRO-GRAD [Concomitant]
     Active Substance: FERROUS SULFATE
     Dosage: PROLONGED RELEASE TABLETS
     Route: 048
  4. PLAVIX [Suspect]
     Active Substance: CLOPIDOGREL BISULFATE
     Indication: HYPERTROPHIC CARDIOMYOPATHY
     Route: 048
     Dates: start: 20160101, end: 20160415
  5. IGROTON [Concomitant]
     Active Substance: CHLORTHALIDONE
     Route: 048
  6. ALLOPURINOL. [Concomitant]
     Active Substance: ALLOPURINOL
     Route: 048
  7. RITMODAN RETARD [Concomitant]
     Dosage: PROLONGED RELEASE TABLETS
     Route: 048
  8. PANTOPRAZOLE SODIUM. [Concomitant]
     Active Substance: PANTOPRAZOLE SODIUM
     Route: 048

REACTIONS (1)
  - Hypochromic anaemia [Unknown]

NARRATIVE: CASE EVENT DATE: 20160415
